FAERS Safety Report 8714238 (Version 2)
Quarter: 2014Q3

REPORT INFORMATION
  Report Type: Report from Study
  Country: US (occurrence: US)
  Receive Date: 20120809
  Receipt Date: 20140729
  Transmission Date: 20150326
  Serious: Yes (Other)
  Sender: FDA-Public Use
  Company Number: US-BIOGENIDEC-2012BI029716

PATIENT
  Age: 63 Year
  Sex: Female

DRUGS (3)
  1. AVONEX [Suspect]
     Active Substance: INTERFERON BETA-1A
     Indication: MULTIPLE SCLEROSIS
     Route: 030
     Dates: start: 200908
  2. AVONEX [Suspect]
     Active Substance: INTERFERON BETA-1A
     Indication: MULTIPLE SCLEROSIS
     Route: 030
     Dates: start: 200810
  3. AVONEX [Suspect]
     Active Substance: INTERFERON BETA-1A
     Indication: MULTIPLE SCLEROSIS
     Route: 030
     Dates: start: 200612

REACTIONS (7)
  - Influenza like illness [Unknown]
  - Atrial flutter [Unknown]
  - Asthenia [Unknown]
  - Fatigue [Unknown]
  - Supraventricular tachycardia [Not Recovered/Not Resolved]
  - Heart rate irregular [Unknown]
  - Thrombosis [Unknown]

NARRATIVE: CASE EVENT DATE: 201207
